FAERS Safety Report 13603317 (Version 1)
Quarter: 2017Q2

REPORT INFORMATION
  Report Type: Spontaneous
  Country: US (occurrence: US)
  Receive Date: 20170601
  Receipt Date: 20170601
  Transmission Date: 20170830
  Serious: Yes (Hospitalization, Other)
  Sender: FDA-Public Use
  Company Number: US-MALLINCKRODT-T201702278

PATIENT
  Sex: Female
  Weight: 35 kg

DRUGS (2)
  1. UVADEX [Suspect]
     Active Substance: METHOXSALEN
     Indication: MYCOSIS FUNGOIDES
     Dosage: UNK
     Route: 057
  2. HEPARIN [Concomitant]
     Active Substance: HEPARIN SODIUM
     Indication: ANTICOAGULANT THERAPY
     Dosage: 7,500 UNITS HEPARIN IN 500 ML NORMAL SALINE

REACTIONS (3)
  - Chest pain [Unknown]
  - Blood pressure increased [Unknown]
  - Haemoglobin decreased [Unknown]
